FAERS Safety Report 17257747 (Version 3)
Quarter: 2020Q3

REPORT INFORMATION
  Report Type: Report from Study
  Country: BE (occurrence: BE)
  Receive Date: 20200110
  Receipt Date: 20200121
  Transmission Date: 20201105
  Serious: Yes (Hospitalization, Other)
  Sender: FDA-Public Use
  Company Number: BE-PFIZER INC-2019550122

PATIENT
  Age: 46 Year
  Sex: Female
  Weight: 41 kg

DRUGS (2)
  1. EMTHEXATE [METHOTREXATE] [Concomitant]
     Indication: METASTASES TO MENINGES
     Dosage: 10 (UNKNOWN UNITS), EVERY 15 DAYS, CYCLIC
     Route: 037
     Dates: start: 20190909
  2. TALAZOPARIB. [Suspect]
     Active Substance: TALAZOPARIB
     Indication: BREAST CANCER METASTATIC
     Dosage: 1 MG, DAILY
     Route: 048
     Dates: start: 20191125, end: 20191209

REACTIONS (14)
  - Thrombocytopenia [Recovered/Resolved]
  - White blood cell count decreased [Unknown]
  - Pyrexia [Recovered/Resolved]
  - Red blood cell count decreased [Unknown]
  - C-reactive protein increased [Unknown]
  - Platelet count decreased [Unknown]
  - Alanine aminotransferase increased [Unknown]
  - Lactate dehydrogenase urine increased [Unknown]
  - Neutropenia [Recovered/Resolved]
  - Urine uric acid decreased [Unknown]
  - Urosepsis [Recovered/Resolved]
  - Gamma-glutamyltransferase increased [Unknown]
  - Haematocrit decreased [Unknown]
  - Haemoglobin decreased [Unknown]

NARRATIVE: CASE EVENT DATE: 20191127
